FAERS Safety Report 11056072 (Version 1)
Quarter: 2015Q2

REPORT INFORMATION
  Report Type: Report from Study
  Country: US (occurrence: US)
  Receive Date: 20150422
  Receipt Date: 20150422
  Transmission Date: 20150821
  Serious: Yes (Disabling, Congenital Anomaly)
  Sender: FDA-Public Use
  Company Number: US-TEVA-557103USA

PATIENT
  Age: 0 Day
  Sex: Male

DRUGS (1)
  1. CLARAVIS [Suspect]
     Active Substance: ISOTRETINOIN
     Route: 064

REACTIONS (4)
  - Foetal exposure during pregnancy [Unknown]
  - Ear malformation [Not Recovered/Not Resolved]
  - Congenital aortic anomaly [Recovered/Resolved with Sequelae]
  - Ventricular septal defect [Recovered/Resolved with Sequelae]

NARRATIVE: CASE EVENT DATE: 20131202
